FAERS Safety Report 22149663 (Version 3)
Quarter: 2023Q2

REPORT INFORMATION
  Report Type: Report from Study
  Country: CA (occurrence: CA)
  Receive Date: 20230329
  Receipt Date: 20230407
  Transmission Date: 20230721
  Serious: Yes (Hospitalization, Disabling)
  Sender: FDA-Public Use
  Company Number: CA-SA-SAC20230306001288

PATIENT
  Age: 79 Year
  Sex: Female

DRUGS (2)
  1. ISATUXIMAB [Suspect]
     Active Substance: ISATUXIMAB
     Indication: Plasma cell myeloma refractory
     Dosage: 558 MG, QOW
     Route: 042
     Dates: start: 20210609, end: 20230323
  2. ISATUXIMAB [Suspect]
     Active Substance: ISATUXIMAB
     Dosage: 502 MG, QOW
     Route: 042
     Dates: start: 20230323, end: 20230323

REACTIONS (9)
  - Walking aid user [Not Recovered/Not Resolved]
  - Back pain [Not Recovered/Not Resolved]
  - Pain in extremity [Not Recovered/Not Resolved]
  - Condition aggravated [Not Recovered/Not Resolved]
  - Hospitalisation [Not Recovered/Not Resolved]
  - Asthenia [Not Recovered/Not Resolved]
  - Weight decreased [Not Recovered/Not Resolved]
  - Fatigue [Not Recovered/Not Resolved]
  - Intercepted product prescribing error [Unknown]

NARRATIVE: CASE EVENT DATE: 20230329
